FAERS Safety Report 21347536 (Version 15)
Quarter: 2023Q4

REPORT INFORMATION
  Report Type: Report from Study
  Country: US (occurrence: None)
  Receive Date: 20220919
  Receipt Date: 20231009
  Transmission Date: 20240110
  Serious: Yes (Other)
  Sender: FDA-Public Use
  Company Number: US-ROCHE-3176185

PATIENT
  Age: 77 Year
  Sex: Male
  Weight: 98 kg

DRUGS (47)
  1. RANIBIZUMAB [Suspect]
     Active Substance: RANIBIZUMAB
     Indication: Diabetic retinal oedema
     Dosage: DRUG DOSE FIRST ADMINISTERED WAS 10 MG/ML ONCE IN 24 WEEK
     Route: 050
     Dates: start: 20200128
  2. RANIBIZUMAB [Suspect]
     Active Substance: RANIBIZUMAB
  3. RANIBIZUMAB [Suspect]
     Active Substance: RANIBIZUMAB
  4. RANIBIZUMAB [Suspect]
     Active Substance: RANIBIZUMAB
  5. RANIBIZUMAB [Suspect]
     Active Substance: RANIBIZUMAB
  6. RANIBIZUMAB [Suspect]
     Active Substance: RANIBIZUMAB
     Dosage: DOSE LAST STUDY DRUG ADMIN PRIOR AE: 21/MAR/2022 WAS 100 MG/ML, ONCE IN 24 WEEK
     Route: 050
  7. RANIBIZUMAB [Suspect]
     Active Substance: RANIBIZUMAB
  8. RANIBIZUMAB [Suspect]
     Active Substance: RANIBIZUMAB
  9. RANIBIZUMAB [Suspect]
     Active Substance: RANIBIZUMAB
  10. RANIBIZUMAB [Suspect]
     Active Substance: RANIBIZUMAB
  11. RANIBIZUMAB [Concomitant]
     Active Substance: RANIBIZUMAB
     Indication: Diabetic retinal oedema
     Dosage: DRUG DOSE FIRST ADMINISTERED IS 6 MG/ML. DOSE LAST STUDY DRUG ADMIN PRIOR AE 6 MG/ML.
     Route: 050
     Dates: start: 20220516
  12. RANIBIZUMAB [Concomitant]
     Active Substance: RANIBIZUMAB
     Dosage: 0.3 MG/ML
     Route: 050
     Dates: start: 20221228, end: 20221228
  13. RANIBIZUMAB [Concomitant]
     Active Substance: RANIBIZUMAB
     Dosage: 0.3 MG/ML
     Route: 050
     Dates: start: 20221012, end: 20221012
  14. RANIBIZUMAB [Concomitant]
     Active Substance: RANIBIZUMAB
     Dosage: 0.5 MG/ML
     Route: 050
     Dates: start: 20230424, end: 20230424
  15. RANIBIZUMAB [Concomitant]
     Active Substance: RANIBIZUMAB
     Dosage: 0.3 MG/ML
     Route: 050
     Dates: start: 20230220, end: 20230220
  16. DULOXETINE [Concomitant]
     Active Substance: DULOXETINE
     Indication: Neuropathy peripheral
     Dosage: YES
     Dates: start: 2010
  17. SIMVASTATIN [Concomitant]
     Active Substance: SIMVASTATIN
     Indication: Hypercholesterolaemia
     Dosage: YES
     Dates: start: 2010, end: 20230820
  18. LANTUS SOLOSTAR [Concomitant]
     Active Substance: INSULIN GLARGINE
     Indication: Diabetes mellitus
     Dosage: YES
     Dates: start: 2015
  19. OMEPRAZOLE [Concomitant]
     Active Substance: OMEPRAZOLE
     Indication: Gastrooesophageal reflux disease
     Dosage: YES
     Dates: start: 2010, end: 20230820
  20. LOSARTAN [Concomitant]
     Active Substance: LOSARTAN
     Indication: Hypertension
     Dosage: YES
     Dates: start: 2010
  21. LOSARTAN [Concomitant]
     Active Substance: LOSARTAN
     Dosage: 25 MG/ML
     Route: 048
     Dates: start: 20221107, end: 20230820
  22. NOVOLOG [Concomitant]
     Active Substance: INSULIN ASPART
     Indication: Diabetes mellitus
     Dosage: YES
     Dates: start: 2015
  23. PIOGLITAZONE [Concomitant]
     Active Substance: PIOGLITAZONE
     Indication: Diabetes mellitus
     Dosage: YES
     Dates: start: 2010
  24. OMEGA 3 [Concomitant]
     Active Substance: CAPSAICIN
     Dosage: YES
     Dates: start: 2015
  25. FERROUS SULFATE [Concomitant]
     Active Substance: FERROUS SULFATE
     Indication: Anaemia
     Dosage: GIVEN FOR PROPHYLAXIS IS YES ;ONGOING: YES 65 OTHERS
     Route: 048
     Dates: start: 20200513
  26. ASPIRIN [Concomitant]
     Active Substance: ASPIRIN
     Indication: Cerebrovascular accident prophylaxis
     Dosage: GIVEN FOR PROPHYLAXIS IS YES ;ONGOING: YES. 81 OTHER
     Route: 048
     Dates: start: 20200619
  27. TYLENOL [Concomitant]
     Active Substance: ACETAMINOPHEN
     Indication: Headache
     Dosage: GIVEN FOR PROPHYLAXIS IS YES ;ONGOING: YES. 500 OTHER
     Route: 048
     Dates: start: 2010
  28. TAMSULOSIN [Concomitant]
     Active Substance: TAMSULOSIN
     Indication: Benign prostatic hyperplasia
     Dosage: YES 0.4 MG/ML
     Route: 048
     Dates: start: 20210611
  29. TADALAFIL [Concomitant]
     Active Substance: TADALAFIL
     Indication: Benign prostatic hyperplasia
     Dosage: YES. 5MG/ML.
     Route: 048
     Dates: start: 20220228
  30. NOCDURNA [Concomitant]
     Active Substance: DESMOPRESSIN ACETATE
     Indication: Benign prostatic hyperplasia
     Dosage: 55.3 MG/ML
     Route: 060
     Dates: start: 20220228
  31. METFORMIN [Concomitant]
     Active Substance: METFORMIN HYDROCHLORIDE
     Indication: Diabetes mellitus
     Dates: start: 1990
  32. FIBER [Concomitant]
     Indication: Constipation
     Dates: start: 2018
  33. VITAMIN D3 [Concomitant]
     Active Substance: CHOLECALCIFEROL
     Dates: start: 2010
  34. DILTIAZEM [Concomitant]
     Active Substance: DILTIAZEM
     Indication: Hypertension
     Route: 048
     Dates: start: 20200614
  35. INFLUENZA VIRUS VACCINE [Concomitant]
     Active Substance: INFLUENZA VIRUS VACCINE
     Indication: Antiviral prophylaxis
     Route: 030
     Dates: start: 20220926, end: 20220926
  36. GABAPENTIN [Concomitant]
     Active Substance: GABAPENTIN
     Indication: Trigeminal neuralgia
     Dosage: 300 MG/ML
     Route: 048
     Dates: start: 20230419
  37. LUCENTIS [Concomitant]
     Active Substance: RANIBIZUMAB
     Indication: Diabetic retinal oedema
     Dosage: 0.5 MG/ML
     Route: 050
     Dates: start: 20221228, end: 20221228
  38. LUCENTIS [Concomitant]
     Active Substance: RANIBIZUMAB
     Dosage: 0.5 MG/ML
     Route: 050
     Dates: start: 20230424, end: 20230424
  39. LUCENTIS [Concomitant]
     Active Substance: RANIBIZUMAB
     Dosage: 0.3 MG/ML
     Route: 050
     Dates: start: 20221012, end: 20221012
  40. LUCENTIS [Concomitant]
     Active Substance: RANIBIZUMAB
     Dosage: 0.3 MG/ML
     Route: 050
     Dates: start: 20230220, end: 20230220
  41. LUCENTIS [Concomitant]
     Active Substance: RANIBIZUMAB
     Dosage: 0.5 MG/ML
     Route: 050
     Dates: start: 20230621, end: 20230621
  42. LUCENTIS [Concomitant]
     Active Substance: RANIBIZUMAB
     Route: 050
     Dates: start: 20230807, end: 20230807
  43. LUCENTIS [Concomitant]
     Active Substance: RANIBIZUMAB
     Dosage: O.3 MG/ML
     Route: 050
     Dates: start: 20230820, end: 20230820
  44. ATORVASTATIN [Concomitant]
     Active Substance: ATORVASTATIN
     Indication: Hypertension
     Dosage: 80 MG/ML
     Route: 048
     Dates: start: 20230820
  45. CLOPIDOGREL [Concomitant]
     Active Substance: CLOPIDOGREL BISULFATE
     Dosage: 75 MG/ML
     Route: 048
     Dates: start: 20230820
  46. PANTOPRAZOLE [Concomitant]
     Active Substance: PANTOPRAZOLE
     Indication: Gastrooesophageal reflux disease
     Dosage: 40 MG/ML
     Route: 048
     Dates: start: 20230820
  47. METOPROLOL [Concomitant]
     Active Substance: METOPROLOL
     Indication: Hypertension
     Dosage: 100 MG/ML
     Route: 048
     Dates: start: 20230820

REACTIONS (2)
  - Device issue [Unknown]
  - No adverse event [Unknown]

NARRATIVE: CASE EVENT DATE: 20220907
